FAERS Safety Report 4383099-0 (Version None)
Quarter: 2004Q2

REPORT INFORMATION
  Report Type: 
  Country: None (occurrence: None)
  Receive Date: 20040622
  Receipt Date: 20040622
  Transmission Date: 20050107
  Serious: Yes (Life-Threatening, Hospitalization)
  Sender: FDA-Public Use
  Company Number: None

PATIENT
  Age: 89 Year
  Sex: Female
  Weight: 70.3075 kg

DRUGS (5)
  1. CELEBREX [Suspect]
     Indication: ARTHRITIS
     Dosage: 1 DAILY FROM 4/1/99 TO 3/10/04
     Dates: start: 19990101, end: 20040319
  2. FOSAMAX [Suspect]
     Indication: PROPHYLAXIS
     Dosage: 1 WEEKLY AFTER 1999
     Dates: start: 19990101, end: 20040319
  3. GLUCOSAMINE [Concomitant]
  4. CHONDROITIN [Concomitant]
  5. MULTI-VITAMIN [Concomitant]

REACTIONS (2)
  - GASTRIC ULCER [None]
  - HAEMATEMESIS [None]
